FAERS Safety Report 6812010-5 (Version None)
Quarter: 2010Q3

REPORT INFORMATION
  Report Type: 
  Country: None (occurrence: None)
  Receive Date: 20100701
  Receipt Date: 20100617
  Transmission Date: 20110219
  Serious: Yes (Other)
  Sender: FDA-Public Use
  Company Number: PHHY2010US39963

PATIENT
  Sex: Female
  Weight: 43.537 kg

DRUGS (5)
  1. RECLAST [Suspect]
     Dosage: UNK
     Dates: start: 20100301
  2. FORTEO [Concomitant]
  3. ALLERGY MEDICATION [Concomitant]
  4. ANTIHYPERTENSIVE DRUGS [Concomitant]
  5. ANALGESICS [Concomitant]

REACTIONS (5)
  - BACK DISORDER [None]
  - BACK PAIN [None]
  - BLOOD PRESSURE INCREASED [None]
  - HYPOKINESIA [None]
  - MYALGIA [None]
